FAERS Safety Report 7102161-2 (Version None)
Quarter: 2010Q4

REPORT INFORMATION
  Report Type: 
  Country: None (occurrence: None)
  Receive Date: 20101115
  Receipt Date: 20101102
  Transmission Date: 20110411
  Serious: Yes (Hospitalization)
  Sender: FDA-Public Use
  Company Number: US-ROCHE-738928

PATIENT
  Sex: Female

DRUGS (2)
  1. AVASTIN [Suspect]
     Route: 065
  2. AVASTIN [Suspect]
     Route: 065
     Dates: start: 20101012

REACTIONS (2)
  - PANCYTOPENIA [None]
  - ULCER [None]
